APPROVED DRUG PRODUCT: DUTREBIS
Active Ingredient: LAMIVUDINE; RALTEGRAVIR POTASSIUM
Strength: 150MG;EQ 300MG BASE
Dosage Form/Route: TABLET;ORAL
Application: N206510 | Product #001
Applicant: MERCK SHARP AND DOHME CORP
Approved: Feb 6, 2015 | RLD: No | RS: No | Type: DISCN

PATENTS:
Patent 7754731 | Expires: Mar 11, 2029
Patent 7754731*PED | Expires: Sep 11, 2029